FAERS Safety Report 7574363-2 (Version None)
Quarter: 2011Q2

REPORT INFORMATION
  Report Type: 
  Country: None (occurrence: None)
  Receive Date: 20110627
  Receipt Date: 20110615
  Transmission Date: 20111010
  Serious: Yes (Hospitalization)
  Sender: FDA-Public Use
  Company Number: JP-BRISTOL-MYERS SQUIBB COMPANY-15831712

PATIENT
  Age: 60 Year
  Sex: Male

DRUGS (1)
  1. PARAPLATIN [Suspect]
     Indication: LUNG NEOPLASM MALIGNANT
     Dosage: 2ND ADMINISTRATION
     Route: 041
     Dates: end: 20110610

REACTIONS (1)
  - LEUKOENCEPHALOPATHY [None]
